FAERS Safety Report 9858787 (Version 2)
Quarter: 2014Q1

REPORT INFORMATION
  Report Type: Spontaneous
  Country: US (occurrence: US)
  Receive Date: 20140131
  Receipt Date: 20140131
  Transmission Date: 20141002
  Serious: Yes (Other)
  Sender: FDA-Public Use
  Company Number: US-GE HEALTHCARE MEDICAL DIAGNOSTICS-OSCN-PR-0911S-0493

PATIENT
  Sex: Female

DRUGS (9)
  1. OMNISCAN [Suspect]
     Indication: CHOLELITHIASIS
     Dates: start: 20041221, end: 20041221
  2. OMNISCAN [Suspect]
     Indication: ASCITES
     Dates: start: 20041223, end: 20041223
  3. OMNISCAN [Suspect]
     Indication: PANCREATIC MASS
     Dates: start: 20020715, end: 20020715
  4. OMNISCAN [Suspect]
     Indication: PRODUCT USED FOR UNKNOWN INDICATION
     Dates: start: 20020718, end: 20020718
  5. MAGNEVIST [Suspect]
     Indication: SPINAL OPERATION
     Dates: start: 19990223, end: 19990223
  6. MAGNEVIST [Suspect]
     Dates: start: 19991203, end: 19991203
  7. MAGNEVIST [Suspect]
     Dates: start: 19991224, end: 19991224
  8. PREDNISONE [Concomitant]
     Indication: PRODUCT USED FOR UNKNOWN INDICATION
  9. EPOGEN [Concomitant]
     Indication: ANAEMIA
     Dates: start: 200104

REACTIONS (1)
  - Nephrogenic systemic fibrosis [Not Recovered/Not Resolved]
